FAERS Safety Report 23411105 (Version 1)
Quarter: 2024Q1

REPORT INFORMATION
  Report Type: Spontaneous
  Country: US (occurrence: US)
  Receive Date: 20240117
  Receipt Date: 20240117
  Transmission Date: 20240410
  Serious: No
  Sender: FDA-Public Use
  Company Number: US-SK LIFE SCIENCE, INC-SKPVG-2023-000366

PATIENT

DRUGS (10)
  1. XCOPRI [Suspect]
     Active Substance: CENOBAMATE
     Indication: Seizure
     Dosage: UNK
     Route: 048
     Dates: start: 20230307
  2. XCOPRI [Suspect]
     Active Substance: CENOBAMATE
     Dosage: 25MG, 1 TABLET, AT NIGHT
     Route: 048
     Dates: end: 20230403
  3. XCOPRI [Suspect]
     Active Substance: CENOBAMATE
     Dosage: 25MG ONCE DAILY (ONE-HALF OF A 50MG TABLET)
     Route: 048
     Dates: start: 20230810
  4. SERTRALINE HYDROCHLORIDE [Concomitant]
     Active Substance: SERTRALINE HYDROCHLORIDE
     Indication: Product used for unknown indication
     Dosage: 100MG TABLETS, TABLET AND A HALF EACH DAY
     Route: 065
  5. SERTRALINE HYDROCHLORIDE [Concomitant]
     Active Substance: SERTRALINE HYDROCHLORIDE
     Dosage: 100 MILLIGRAM, QD
     Route: 065
  6. SERTRALINE HYDROCHLORIDE [Concomitant]
     Active Substance: SERTRALINE HYDROCHLORIDE
     Dosage: 100 MG TAB (1.5 DAILY)
     Route: 065
  7. LEVETIRACETAM [Concomitant]
     Active Substance: LEVETIRACETAM
     Indication: Product used for unknown indication
     Dosage: 500MG, ONE EVERYDAY
     Route: 065
  8. LEVETIRACETAM [Concomitant]
     Active Substance: LEVETIRACETAM
     Dosage: 750MG, FOUR TABLETS DAILY
     Route: 065
  9. GABAPENTIN [Concomitant]
     Active Substance: GABAPENTIN
     Indication: Product used for unknown indication
     Dosage: 300 MG CAP (1 DAILY)
     Route: 065
  10. UNISOM                             /00000402/ [Concomitant]
     Indication: Insomnia
     Dosage: UNK
     Route: 065

REACTIONS (10)
  - Product use issue [Recovered/Resolved]
  - Wrong technique in product usage process [Not Recovered/Not Resolved]
  - Influenza like illness [Recovering/Resolving]
  - Pyrexia [Recovered/Resolved]
  - Hyperhidrosis [Recovering/Resolving]
  - COVID-19 [Recovering/Resolving]
  - Insomnia [Recovering/Resolving]
  - Nasopharyngitis [Recovering/Resolving]
  - Dyspnoea [Recovering/Resolving]
  - Fatigue [Recovering/Resolving]

NARRATIVE: CASE EVENT DATE: 20230404
